FAERS Safety Report 16237622 (Version 1)
Quarter: 2019Q2

REPORT INFORMATION
  Report Type: Spontaneous
  Country: GB (occurrence: GB)
  Receive Date: 20190425
  Receipt Date: 20190425
  Transmission Date: 20190711
  Serious: Yes (Hospitalization)
  Sender: FDA-Public Use
  Company Number: GB-BAYER-2019-076336

PATIENT
  Age: 27 Year
  Sex: Female

DRUGS (1)
  1. AVELOX [Suspect]
     Active Substance: MOXIFLOXACIN HYDROCHLORIDE
     Indication: MYCOPLASMA GENITALIUM INFECTION
     Dosage: 400 MG, UNK
     Route: 002
     Dates: start: 20190207, end: 20190221

REACTIONS (5)
  - Stevens-Johnson syndrome [Recovering/Resolving]
  - Skin exfoliation [Recovering/Resolving]
  - Mouth ulceration [Recovering/Resolving]
  - Malaise [Recovering/Resolving]
  - Erythema [Recovering/Resolving]

NARRATIVE: CASE EVENT DATE: 20190216
